FAERS Safety Report 5919351-4 (Version None)
Quarter: 2008Q4

REPORT INFORMATION
  Report Type: 
  Country: None (occurrence: None)
  Receive Date: 20081015
  Receipt Date: 20081010
  Transmission Date: 20090506
  Serious: Yes (Other)
  Sender: FDA-Public Use
  Company Number: A0751346A

PATIENT
  Age: 67 Year
  Sex: Male

DRUGS (9)
  1. AVODART [Suspect]
     Indication: BENIGN PROSTATIC HYPERPLASIA
     Dosage: .5MG SINGLE DOSE
     Route: 048
     Dates: start: 20080926
  2. FLOMAX [Concomitant]
  3. PLAVIX [Concomitant]
  4. ACIPHEX [Concomitant]
  5. LIPITOR [Concomitant]
  6. TRAMADOL HCL [Concomitant]
  7. OSTEO BIFLEX [Concomitant]
  8. FISH OIL [Concomitant]
  9. ASPIRIN [Concomitant]

REACTIONS (3)
  - ABDOMINAL PAIN UPPER [None]
  - HYPERHIDROSIS [None]
  - LOSS OF CONSCIOUSNESS [None]
